FAERS Safety Report 22381381 (Version 1)
Quarter: 2023Q2

REPORT INFORMATION
  Report Type: Spontaneous
  Country: US (occurrence: US)
  Receive Date: 20230530
  Receipt Date: 20230530
  Transmission Date: 20230722
  Serious: Yes (Hospitalization)
  Sender: FDA-Public Use
  Company Number: US-BIOGEN-2023BI01192785

PATIENT
  Age: 80 Year
  Sex: Female

DRUGS (4)
  1. AVONEX [Suspect]
     Active Substance: INTERFERON BETA-1A
     Indication: Multiple sclerosis
     Route: 050
     Dates: start: 20020825
  2. AVONEX [Suspect]
     Active Substance: INTERFERON BETA-1A
  3. AVONEX [Suspect]
     Active Substance: INTERFERON BETA-1A
  4. AVONEX [Suspect]
     Active Substance: INTERFERON BETA-1A

REACTIONS (14)
  - Fall [Recovered/Resolved]
  - Malnutrition [Unknown]
  - Rib fracture [Unknown]
  - Photopsia [Unknown]
  - Depression [Unknown]
  - Dehydration [Recovered/Resolved]
  - Mental status changes [Not Recovered/Not Resolved]
  - Contusion [Unknown]
  - Skin laceration [Unknown]
  - Tongue erythema [Recovered/Resolved with Sequelae]
  - Glossodynia [Recovered/Resolved with Sequelae]
  - Product dose omission issue [Recovered/Resolved]
  - Medical device site burn [Unknown]
  - Tooth fracture [Unknown]

NARRATIVE: CASE EVENT DATE: 20230211
